FAERS Safety Report 5199437-5 (Version None)
Quarter: 2006Q4

REPORT INFORMATION
  Report Type: 
  Country: None (occurrence: None)
  Receive Date: 20061229
  Receipt Date: 20061221
  Transmission Date: 20070319
  Serious: No
  Sender: FDA-Public Use
  Company Number: TPA2006A02269

PATIENT
  Age: 67 Year
  Sex: Female
  Weight: 81.6475 kg

DRUGS (10)
  1. ACTOS [Suspect]
     Indication: DIABETES MELLITUS NON-INSULIN-DEPENDENT
     Dosage: SEE IMAGE, PER ORAL
     Route: 048
     Dates: start: 20030101, end: 20051201
  2. ACTOS [Suspect]
     Indication: DIABETES MELLITUS NON-INSULIN-DEPENDENT
     Dosage: SEE IMAGE, PER ORAL
     Route: 048
     Dates: start: 20051201
  3. UNKNOWN INSULIN (INSULIN) [Concomitant]
  4. VALIUM [Concomitant]
  5. TOPROL-XL [Concomitant]
  6. CRESTOR [Concomitant]
  7. DARVOCET (PARACETAMOL, DEXTROPROPOXYPHENE NAPSILATE) [Concomitant]
  8. UNK PSORIASIS MEDICATION (SALICYLIC ACID, ALLANTOIN, FUMARIC ACID, MET [Concomitant]
  9. REQUIP [Concomitant]
  10. AMBIEN CR (ZOLPIDEM TARTRATE) [Concomitant]

REACTIONS (11)
  - ANXIETY [None]
  - BALANCE DISORDER [None]
  - BLOOD GLUCOSE INCREASED [None]
  - CONDITION AGGRAVATED [None]
  - EAR INFECTION [None]
  - FEELING ABNORMAL [None]
  - HYPERSOMNIA [None]
  - PAIN IN EXTREMITY [None]
  - SELF-MEDICATION [None]
  - SURGICAL PROCEDURE REPEATED [None]
  - TREATMENT NONCOMPLIANCE [None]
